FAERS Safety Report 5683475-X (Version None)
Quarter: 2008Q1

REPORT INFORMATION
  Report Type: 
  Country: None (occurrence: None)
  Receive Date: 20080326
  Receipt Date: 20080312
  Transmission Date: 20080703
  Serious: Yes (Death)
  Sender: FDA-Public Use
  Company Number: E2020-02441-SPO-JP

PATIENT
  Age: 77 Year
  Sex: Male

DRUGS (3)
  1. ARICEPT [Suspect]
     Indication: DEMENTIA ALZHEIMER'S TYPE
     Dosage: 3 MG, 1 IN 1 D, ORAL; 5 MG, 1 IN 1 D, ORAL; 3 MG, 1 IN 1 D, ORAL
     Route: 048
     Dates: start: 20071101, end: 20071101
  2. ARICEPT [Suspect]
     Indication: DEMENTIA ALZHEIMER'S TYPE
     Dosage: 3 MG, 1 IN 1 D, ORAL; 5 MG, 1 IN 1 D, ORAL; 3 MG, 1 IN 1 D, ORAL
     Route: 048
     Dates: start: 20071101, end: 20071201
  3. ARICEPT [Suspect]
     Indication: DEMENTIA ALZHEIMER'S TYPE
     Dosage: 3 MG, 1 IN 1 D, ORAL; 5 MG, 1 IN 1 D, ORAL; 3 MG, 1 IN 1 D, ORAL
     Route: 048
     Dates: start: 20071201

REACTIONS (3)
  - AGITATION [None]
  - POLLAKIURIA [None]
  - SUDDEN DEATH [None]
